FAERS Safety Report 6081133-3 (Version None)
Quarter: 2009Q1

REPORT INFORMATION
  Report Type: 
  Country: None (occurrence: None)
  Receive Date: 20090217
  Receipt Date: 20090209
  Transmission Date: 20090719
  Serious: Yes (Hospitalization)
  Sender: FDA-Public Use
  Company Number: US-GENENTECH-277131

PATIENT
  Sex: Male
  Weight: 116.1 kg

DRUGS (2)
  1. BEVACIZUMAB [Suspect]
     Indication: GLIOBLASTOMA MULTIFORME
     Dosage: 5 MG/KG, D1
     Route: 042
     Dates: start: 20081230
  2. SORAFENIB [Suspect]
     Indication: GLIOBLASTOMA MULTIFORME
     Dosage: 200 MG, UNK
     Route: 048
     Dates: start: 20081230

REACTIONS (3)
  - DISEASE PROGRESSION [None]
  - FATIGUE [None]
  - MUSCULAR WEAKNESS [None]
